FAERS Safety Report 7483976-8 (Version None)
Quarter: 2011Q1

REPORT INFORMATION
  Report Type: 
  Country: None (occurrence: None)
  Receive Date: 20110309
  Receipt Date: 20110121
  Transmission Date: 20110831
  Serious: No
  Sender: FDA-Public Use
  Company Number: 2011SP003217

PATIENT
  Age: 16 Year
  Sex: Female

DRUGS (1)
  1. SAPHRIS [Suspect]
     Indication: ANGER
     Dosage: 5 MG;BID;SL
     Route: 060
     Dates: start: 20110119

REACTIONS (2)
  - PRODUCT TASTE ABNORMAL [None]
  - HYPOAESTHESIA ORAL [None]
